FAERS Safety Report 23582538 (Version 1)
Quarter: 2024Q1

REPORT INFORMATION
  Report Type: Report from Study
  Country: US (occurrence: US)
  Receive Date: 20240229
  Receipt Date: 20240229
  Transmission Date: 20240410
  Serious: Yes (Death, Other)
  Sender: FDA-Public Use
  Company Number: US-ACADIA PHARMACEUTICALS INC.-ACA-2024-PIM-000622

PATIENT
  Age: 72 Year
  Sex: Female

DRUGS (13)
  1. NUPLAZID [Suspect]
     Active Substance: PIMAVANSERIN TARTRATE
     Indication: Parkinson^s disease psychosis
     Dosage: 34 MILLIGRAM, QD
     Route: 048
     Dates: start: 20230509, end: 20240112
  2. ESCITALOPRAM [Concomitant]
     Active Substance: ESCITALOPRAM OXALATE
     Dosage: 10 MILLIGRAM
  3. TRAZODONE [Concomitant]
     Active Substance: TRAZODONE HYDROCHLORIDE
     Dosage: 50 MILLIGRAM
  4. VITAMIN D3 [Concomitant]
     Active Substance: CHOLECALCIFEROL
     Dosage: 50,000 UNITS
  5. CARBIDOPA\LEVODOPA [Concomitant]
     Active Substance: CARBIDOPA\LEVODOPA
  6. QUETIAPINE [Concomitant]
     Active Substance: QUETIAPINE
     Dosage: 100+50 MG
  7. PRAMIPEXOLE [Concomitant]
     Active Substance: PRAMIPEXOLE\PRAMIPEXOLE DIHYDROCHLORIDE
     Dosage: 1.5 MILLIGRAM
  8. MIDODRINE [Concomitant]
     Active Substance: MIDODRINE
     Dosage: 5 MILLIGRAM
  9. LEVOTHYROXINE [Concomitant]
     Active Substance: LEVOTHYROXINE\LEVOTHYROXINE SODIUM
     Dosage: 0.05 MILLIGRAM
  10. GEMTESA [Concomitant]
     Active Substance: VIBEGRON
     Dosage: 75 MILLIGRAM
  11. FUROSEMIDE [Concomitant]
     Active Substance: FUROSEMIDE
     Dosage: 20 MILLIGRAM
  12. ELIQUIS [Concomitant]
     Active Substance: APIXABAN
     Dosage: 5 MILLIGRAM
  13. FERROUS SULFATE [Concomitant]
     Active Substance: FERROUS SULFATE
     Dosage: 325 MILLIGRAM

REACTIONS (1)
  - Thrombosis [Recovered/Resolved]

NARRATIVE: CASE EVENT DATE: 20240112
